FAERS Safety Report 25603816 (Version 1)
Quarter: 2025Q3

REPORT INFORMATION
  Report Type: Report from Study
  Country: US (occurrence: US)
  Receive Date: 20250725
  Receipt Date: 20250725
  Transmission Date: 20251021
  Serious: Yes (Other)
  Sender: JOHNSON AND JOHNSON
  Company Number: US-JNJFOC-20250722853

PATIENT
  Age: 60 Year
  Sex: Female

DRUGS (2)
  1. SPRAVATO [Suspect]
     Active Substance: ESKETAMINE
     Indication: Depression
     Dosage: 56 MG, TOTAL OF 1 DOSE
     Route: 045
     Dates: start: 20250716, end: 20250716
  2. SPRAVATO [Suspect]
     Active Substance: ESKETAMINE
     Route: 045
     Dates: start: 20250718, end: 20250718

REACTIONS (3)
  - Alcohol poisoning [Recovered/Resolved]
  - Irritability [Recovering/Resolving]
  - Pollakiuria [Recovered/Resolved]

NARRATIVE: CASE EVENT DATE: 20250716
